FAERS Safety Report 10263727 (Version 2)
Quarter: 2014Q4

REPORT INFORMATION
  Report Type: Spontaneous
  Country: US (occurrence: US)
  Receive Date: 20140627
  Receipt Date: 20141222
  Transmission Date: 20150528
  Serious: No
  Sender: FDA-Public Use
  Company Number: US-GILEAD-2014-0106812

PATIENT
  Age: 38 Year
  Sex: Female

DRUGS (10)
  1. LETAIRIS [Suspect]
     Active Substance: AMBRISENTAN
     Indication: PULMONARY HYPERTENSION
     Dosage: 10 MG, QD
     Route: 065
     Dates: start: 20140606
  2. XANAX [Concomitant]
     Active Substance: ALPRAZOLAM
  3. VITAMIN D [Concomitant]
     Active Substance: CHOLECALCIFEROL
  4. ADCIRCA [Concomitant]
     Active Substance: TADALAFIL
  5. LETAIRIS [Suspect]
     Active Substance: AMBRISENTAN
     Indication: SYSTEMIC LUPUS ERYTHEMATOSUS
  6. MAGNESIUM [Concomitant]
     Active Substance: MAGNESIUM
  7. WARFARIN [Concomitant]
     Active Substance: WARFARIN
  8. HYDROCHLOROTHIAZIDE. [Concomitant]
     Active Substance: HYDROCHLOROTHIAZIDE
  9. HYDROCODONE [Concomitant]
     Active Substance: HYDROCODONE
  10. IRON [Concomitant]
     Active Substance: IRON

REACTIONS (1)
  - Headache [Not Recovered/Not Resolved]

NARRATIVE: CASE EVENT DATE: 20140620
